FAERS Safety Report 4804336-1 (Version None)
Quarter: 2005Q4

REPORT INFORMATION
  Report Type: 
  Country: None (occurrence: None)
  Receive Date: 20051020
  Receipt Date: 20051011
  Transmission Date: 20060501
  Serious: Yes (Hospitalization)
  Sender: FDA-Public Use
  Company Number: GB-BRISTOL-MYERS SQUIBB COMPANY-13143029

PATIENT
  Age: 70 Year
  Sex: Female

DRUGS (3)
  1. CETUXIMAB [Suspect]
     Indication: NON-SMALL CELL LUNG CANCER
     Dosage: 24-JUN-2005 MOST RECENT INFUSION OF CETUXIMAB(4TH INFUSION).
     Route: 041
     Dates: start: 20050526, end: 20050626
  2. CISPLATIN [Suspect]
     Indication: NON-SMALL CELL LUNG CANCER
     Dosage: MOST RECENT INFUSION 17-JUN-2005 (2ND INFUSION)
     Route: 042
     Dates: start: 20050526, end: 20050617
  3. VINORELBINE [Suspect]
     Indication: NON-SMALL CELL LUNG CANCER
     Dosage: MOST RECENT INFUSION 24-JUN-2005 (3RD)-DRUG REDUCED/DISCONTINUED.
     Route: 042
     Dates: start: 20050526, end: 20050626

REACTIONS (1)
  - NEUTROPENIC SEPSIS [None]
